FAERS Safety Report 9207433 (Version 1)
Quarter: 2013Q2

REPORT INFORMATION
  Report Type: Spontaneous
  Country: JP (occurrence: JP)
  Receive Date: 20130403
  Receipt Date: 20130403
  Transmission Date: 20140414
  Serious: Yes (Hospitalization)
  Sender: FDA-Public Use
  Company Number: JP-ROCHE-1174336

PATIENT
  Age: 73 Year
  Sex: Male
  Weight: 73 kg

DRUGS (13)
  1. ACTEMRA [Suspect]
     Indication: RHEUMATOID ARTHRITIS
     Route: 041
     Dates: start: 20090903, end: 20091106
  2. ACTEMRA [Suspect]
     Indication: RHEUMATOID ARTHRITIS
     Route: 041
     Dates: start: 20091201, end: 20101202
  3. ACTEMRA [Suspect]
     Indication: RHEUMATOID ARTHRITIS
     Route: 041
     Dates: start: 20110112, end: 20120502
  4. ACTEMRA [Suspect]
     Indication: RHEUMATOID ARTHRITIS
     Route: 041
     Dates: start: 20120613, end: 20121128
  5. BAKTAR [Suspect]
     Indication: PROPHYLAXIS
     Dosage: DOSAGE UNCERTAIN
     Route: 048
     Dates: end: 20120725
  6. CELESTAMINE [Suspect]
     Indication: RHEUMATOID ARTHRITIS
     Route: 048
     Dates: end: 20130104
  7. MAINTATE [Concomitant]
     Route: 048
  8. LIPITOR [Concomitant]
     Indication: HYPERLIPIDAEMIA
     Route: 048
  9. GASLON N [Concomitant]
     Indication: GASTRITIS
     Route: 048
     Dates: end: 20130123
  10. MUCOSOLVAN [Concomitant]
     Route: 048
  11. BENET [Concomitant]
     Route: 048
  12. URSO [Concomitant]
     Route: 048
  13. PNEUMOCOCCAL VACCINE [Concomitant]
     Dosage: DOSAGE IS UNCERTAIN.
     Route: 042
     Dates: start: 201011, end: 201011

REACTIONS (3)
  - Pneumocystis jirovecii pneumonia [Recovered/Resolved]
  - Interstitial lung disease [Recovered/Resolved]
  - Drug eruption [Unknown]
